FAERS Safety Report 6693389-4 (Version None)
Quarter: 2010Q2

REPORT INFORMATION
  Report Type: 
  Country: None (occurrence: None)
  Receive Date: 20100420
  Receipt Date: 20100305
  Transmission Date: 20101027
  Serious: Yes (Death)
  Sender: FDA-Public Use
  Company Number: 010204

PATIENT
  Sex: Male
  Weight: 77 kg

DRUGS (3)
  1. ROTIGOTINE (ROTIGOTINE) [Suspect]
     Indication: PARKINSON'S DISEASE
     Dosage: (16 MG QD TRANSDERMAL)
     Route: 062
     Dates: start: 20041126, end: 20091110
  2. SINEMET [Concomitant]
  3. SINEMET CR [Concomitant]

REACTIONS (2)
  - ACCIDENT [None]
  - FALL [None]
